FAERS Safety Report 10028120 (Version 1)
Quarter: 2014Q1

REPORT INFORMATION
  Report Type: Spontaneous
  Country: US (occurrence: None)
  Receive Date: 20140319
  Receipt Date: 20140319
  Transmission Date: 20141002
  Serious: Yes (Other)
  Sender: FDA-Public Use
  Company Number: ADE14-008

PATIENT
  Age: 51 Year
  Sex: Female
  Weight: 65 kg

DRUGS (5)
  1. HEPARIN SODIUM [Suspect]
     Indication: MITRAL VALVE REPAIR
     Dosage: 33,000 U TOTAL DOSE IV.
     Route: 042
  2. RENAL VITAMIN [Concomitant]
  3. OMEPRAZOLE [Concomitant]
  4. LOSARTAN [Concomitant]
  5. MEDICATIONS REQUIRED FOR SURGICAL PROCEDURE [Concomitant]

REACTIONS (2)
  - Drug ineffective [None]
  - Product quality issue [None]
